FAERS Safety Report 6188682-8 (Version None)
Quarter: 2009Q2

REPORT INFORMATION
  Report Type: 
  Country: None (occurrence: None)
  Receive Date: 20090511
  Receipt Date: 20090511
  Transmission Date: 20091009
  Serious: Yes (Life-Threatening, Hospitalization)
  Sender: FDA-Public Use
  Company Number: None

PATIENT
  Age: 77 Year
  Sex: Male

DRUGS (16)
  1. WARFARIN SODIUM [Suspect]
     Indication: ATRIAL FIBRILLATION
     Dates: start: 20090101, end: 20090211
  2. ACETAMINOPHEN TAB [Concomitant]
  3. ALBUTEROL SOLN, INHL [Concomitant]
  4. ALENDRONATE SODIUM TAB [Concomitant]
  5. ASPIRIN EC (LOW DOSE) TAB,EC [Concomitant]
  6. CALCIUM CARBONATE W/VITAMIN D TAB [Concomitant]
  7. CARVEDILOL TAB [Concomitant]
  8. DESONIDE CREAM, TOP [Concomitant]
  9. DIGOXIN [Concomitant]
  10. DONEPEZIL HCL TAB [Concomitant]
  11. FINASTERIDE TAB [Concomitant]
  12. GUAIFENESIN [Concomitant]
  13. IPRATROPIUM BROMIDE SOLN SOLN, INHL [Concomitant]
  14. MOXIFLOXACIN TAB [Concomitant]
  15. MULTI-VITAMIN [Concomitant]
  16. SIMVASTATIN [Concomitant]

REACTIONS (6)
  - DIZZINESS [None]
  - FATIGUE [None]
  - HAEMATOCHEZIA [None]
  - INTERNATIONAL NORMALISED RATIO DECREASED [None]
  - INTERNATIONAL NORMALISED RATIO INCREASED [None]
  - PNEUMONIA [None]
